FAERS Safety Report 15258310 (Version 2)
Quarter: 2018Q4

REPORT INFORMATION
  Report Type: Spontaneous
  Country: FR (occurrence: FR)
  Receive Date: 20180809
  Receipt Date: 20181022
  Transmission Date: 20190204
  Serious: Yes (Hospitalization)
  Sender: FDA-Public Use
  Company Number: FR-MERCK KGAA-2053494

PATIENT
  Age: 64 Year
  Sex: Female
  Weight: 110 kg

DRUGS (14)
  1. KARDEGIC [Suspect]
     Active Substance: ASPIRIN DL-LYSINE
     Route: 048
  2. GABAPENTINE [Suspect]
     Active Substance: GABAPENTIN
     Route: 048
     Dates: start: 201501
  3. JANUMET [Suspect]
     Active Substance: METFORMIN HYDROCHLORIDE\SITAGLIPTIN PHOSPHATE
     Route: 048
     Dates: end: 20180619
  4. HYDROCHLOROTHIAZIDE. [Suspect]
     Active Substance: HYDROCHLOROTHIAZIDE
     Route: 048
  5. TRAMADOL. [Suspect]
     Active Substance: TRAMADOL
     Route: 048
  6. IRBESARTAN. [Suspect]
     Active Substance: IRBESARTAN
     Route: 048
  7. ZOPICLONE [Suspect]
     Active Substance: ZOPICLONE
     Route: 048
  8. EUPRESSYL [Suspect]
     Active Substance: URAPIDIL
     Route: 048
  9. TOVIAZ [Suspect]
     Active Substance: FESOTERODINE FUMARATE
     Route: 048
     Dates: start: 2017
  10. EUTHYROX [Suspect]
     Active Substance: LEVOTHYROXINE SODIUM
     Indication: HYPOTHYROIDISM
     Route: 048
     Dates: end: 20180625
  11. ALLOPURINOL. [Suspect]
     Active Substance: ALLOPURINOL
     Route: 048
  12. AMLODIPINE [Suspect]
     Active Substance: AMLODIPINE BESYLATE
     Route: 048
  13. PARACETAMOL [Suspect]
     Active Substance: ACETAMINOPHEN
     Route: 048
  14. ATORVASTATINE [Suspect]
     Active Substance: ATORVASTATIN
     Route: 048

REACTIONS (1)
  - Pemphigoid [Recovering/Resolving]

NARRATIVE: CASE EVENT DATE: 201803
